FAERS Safety Report 19434361 (Version 1)
Quarter: 2021Q2

REPORT INFORMATION
  Report Type: Spontaneous
  Country: CA (occurrence: CA)
  Receive Date: 20210618
  Receipt Date: 20210618
  Transmission Date: 20210717
  Serious: Yes (Hospitalization)
  Sender: FDA-Public Use
  Company Number: CA-CELLTRION INC.-2021CA006897

PATIENT

DRUGS (1)
  1. INFLECTRA [Suspect]
     Active Substance: INFLIXIMAB-DYYB
     Indication: COLITIS ULCERATIVE
     Dosage: 300MG, EVERY 8 WEEKS
     Route: 042
     Dates: start: 20210423

REACTIONS (6)
  - Dyspnoea [Recovered/Resolved]
  - Plicated tongue [Recovered/Resolved]
  - Off label use [Unknown]
  - Back pain [Recovered/Resolved]
  - Mental disorder [Unknown]
  - Pyrexia [Recovered/Resolved]

NARRATIVE: CASE EVENT DATE: 20210423
